FAERS Safety Report 4413188-3 (Version None)
Quarter: 2004Q3

REPORT INFORMATION
  Report Type: 
  Country: None (occurrence: None)
  Receive Date: 20040802
  Receipt Date: 20040729
  Transmission Date: 20050211
  Serious: Yes (Life-Threatening, Hospitalization)
  Sender: FDA-Public Use
  Company Number: FR-GLAXOSMITHKLINE-B0340874A

PATIENT
  Age: 36 Year
  Sex: Female
  Weight: 52 kg

DRUGS (6)
  1. COMBIVIR [Suspect]
     Indication: HIV INFECTION
     Dosage: 1TAB TWICE PER DAY
     Route: 048
  2. VIRACEPT [Suspect]
     Indication: HIV INFECTION
     Route: 048
     Dates: end: 20040219
  3. KALETRA [Suspect]
     Indication: HIV INFECTION
     Dosage: 3UNIT TWICE PER DAY
     Route: 048
     Dates: start: 20040219
  4. TARDYFERON [Suspect]
     Route: 048
  5. ACIDE FOLIQUE [Suspect]
     Route: 048
  6. AZT [Concomitant]
     Indication: ANTIVIRAL PROPHYLAXIS
     Route: 042
     Dates: start: 20040630

REACTIONS (9)
  - ALBUMIN URINE PRESENT [None]
  - BLOOD URIC ACID INCREASED [None]
  - ERYSIPELAS [None]
  - FACE OEDEMA [None]
  - HYPERTENSION [None]
  - OEDEMA PERIPHERAL [None]
  - PRE-ECLAMPSIA [None]
  - PREMATURE BABY [None]
  - PROTEINURIA [None]
